FAERS Safety Report 15655703 (Version 1)
Quarter: 2018Q4

REPORT INFORMATION
  Report Type: Spontaneous
  Country: US (occurrence: US)
  Receive Date: 20181126
  Receipt Date: 20181126
  Transmission Date: 20190205
  Serious: No
  Sender: FDA-Public Use
  Company Number: US-TEVA-2018-US-978056

PATIENT
  Sex: Male

DRUGS (1)
  1. FENTANYL ACTAVIS [Suspect]
     Active Substance: FENTANYL
     Dosage: 25 MCG/HR
     Route: 062

REACTIONS (1)
  - Skin irritation [Unknown]
